FAERS Safety Report 5209571-9 (Version None)
Quarter: 2007Q1

REPORT INFORMATION
  Report Type: 
  Country: None (occurrence: None)
  Receive Date: 20070116
  Receipt Date: 20070104
  Transmission Date: 20070707
  Serious: Yes (Other)
  Sender: FDA-Public Use
  Company Number: AU-PFIZER INC-2007002221

PATIENT
  Age: 68 Year
  Sex: Female

DRUGS (7)
  1. DILANTIN [Suspect]
  2. ASPIRIN [Concomitant]
  3. LIPITOR [Concomitant]
  4. ENDEP [Concomitant]
  5. VALIUM [Concomitant]
  6. SPIRIVA ^PFIZER^ [Concomitant]
  7. VENTOLIN [Concomitant]

REACTIONS (1)
  - CHOREOATHETOSIS [None]
